FAERS Safety Report 6127762-X (Version None)
Quarter: 2009Q1

REPORT INFORMATION
  Report Type: 
  Country: None (occurrence: None)
  Receive Date: 20090320
  Receipt Date: 20090320
  Transmission Date: 20090719
  Serious: Yes (Other)
  Sender: FDA-Public Use
  Company Number: None

PATIENT
  Sex: Female
  Weight: 22 kg

DRUGS (2)
  1. LEVETIRACETAM [Suspect]
     Indication: CONVULSION
     Dosage: 3 ML PO BID
     Route: 048
     Dates: start: 20090303
  2. LEVETIRACETAM [Suspect]
     Indication: FRONTAL LOBE EPILEPSY
     Dosage: 3 ML PO BID
     Route: 048
     Dates: start: 20090303

REACTIONS (1)
  - CONVULSION [None]
